FAERS Safety Report 24366630 (Version 1)
Quarter: 2024Q3

REPORT INFORMATION
  Report Type: Spontaneous
  Country: JP (occurrence: JP)
  Receive Date: 20240926
  Receipt Date: 20240926
  Transmission Date: 20241017
  Serious: Yes (Hospitalization)
  Sender: BAYER
  Company Number: JP-BAYER-2024A137633

PATIENT
  Age: 71 Year
  Sex: Male

DRUGS (1)
  1. KERENDIA [Suspect]
     Active Substance: FINERENONE
     Indication: Diabetic nephropathy
     Dosage: 10 MG, QD
     Dates: start: 20240803, end: 20240812

REACTIONS (6)
  - Parkinsonism [Not Recovered/Not Resolved]
  - Fall [None]
  - Loss of consciousness [Not Recovered/Not Resolved]
  - Vomiting [None]
  - Dizziness [None]
  - Gait disturbance [None]

NARRATIVE: CASE EVENT DATE: 20240101
